FAERS Safety Report 4786224-2 (Version None)
Quarter: 2005Q3

REPORT INFORMATION
  Report Type: 
  Country: None (occurrence: None)
  Receive Date: 20050930
  Receipt Date: 20050920
  Transmission Date: 20060218
  Serious: Yes (Other)
  Sender: FDA-Public Use
  Company Number: 2005130534

PATIENT
  Age: 46 Year
  Sex: Male
  Weight: 63.5036 kg

DRUGS (3)
  1. NEURONTIN [Suspect]
     Indication: MOVEMENT DISORDER
     Dosage: 300 MG (1 IN 1 D), ORAL
     Route: 048
     Dates: start: 20040201, end: 20050201
  2. LIPITOR [Suspect]
     Indication: BLOOD CHOLESTEROL INCREASED
  3. CELEXA [Concomitant]

REACTIONS (8)
  - BIPOLAR II DISORDER [None]
  - DELUSION [None]
  - DRUG INEFFECTIVE [None]
  - DYSPHEMIA [None]
  - FEELING ABNORMAL [None]
  - MANIA [None]
  - MOVEMENT DISORDER [None]
  - PARANOIA [None]
